FAERS Safety Report 13265262 (Version 5)
Quarter: 2017Q2

REPORT INFORMATION
  Report Type: Spontaneous
  Country: US (occurrence: US)
  Receive Date: 20170223
  Receipt Date: 20170407
  Transmission Date: 20170830
  Serious: Yes (Other)
  Sender: FDA-Public Use
  Company Number: US-GLAXOSMITHKLINE-US2017GSK025468

PATIENT
  Sex: Female
  Weight: 128.35 kg

DRUGS (2)
  1. VALTREX [Suspect]
     Active Substance: VALACYCLOVIR HYDROCHLORIDE
     Indication: PRODUCT USED FOR UNKNOWN INDICATION
     Dosage: UNK
     Route: 048
     Dates: start: 20120523
  2. VALTREX [Suspect]
     Active Substance: VALACYCLOVIR HYDROCHLORIDE
     Dosage: UNK
     Route: 048
     Dates: start: 20170118

REACTIONS (10)
  - Dyspepsia [Unknown]
  - Retching [Unknown]
  - Malaise [Unknown]
  - Impaired gastric emptying [Unknown]
  - Constipation [Unknown]
  - Ileus [Unknown]
  - Ill-defined disorder [Unknown]
  - Decreased appetite [Unknown]
  - Abdominal pain [Unknown]
  - Vomiting [Unknown]
